FAERS Safety Report 22130090 (Version 1)
Quarter: 2023Q1

REPORT INFORMATION
  Report Type: Spontaneous
  Country: FR (occurrence: FR)
  Receive Date: 20230323
  Receipt Date: 20230323
  Transmission Date: 20230418
  Serious: Yes (Other)
  Sender: FDA-Public Use
  Company Number: None

PATIENT
  Age: 65 Year
  Sex: Female
  Weight: 53 kg

DRUGS (2)
  1. CLINDAMYCIN [Suspect]
     Active Substance: CLINDAMYCIN
     Indication: Tooth abscess
     Dosage: 1800 MG, 1X/DAY
     Route: 048
     Dates: start: 20230211, end: 20230213
  2. MELATONIN [Concomitant]
     Active Substance: MELATONIN
     Dosage: UNK

REACTIONS (7)
  - Anuria [Recovering/Resolving]
  - Lymphadenopathy [Recovered/Resolved]
  - Dysgeusia [Recovered/Resolved]
  - Fatigue [Recovering/Resolving]
  - Oedema [Recovered/Resolved]
  - Pruritus [Recovering/Resolving]
  - Off label use [Unknown]

NARRATIVE: CASE EVENT DATE: 20230211
